FAERS Safety Report 6243007-4 (Version None)
Quarter: 2009Q2

REPORT INFORMATION
  Report Type: 
  Country: None (occurrence: None)
  Receive Date: 20090624
  Receipt Date: 20090617
  Transmission Date: 20091009
  Serious: Yes (Death)
  Sender: FDA-Public Use
  Company Number: JP-PFIZER INC-2009230122

PATIENT
  Age: 83 Year

DRUGS (2)
  1. CELECOXIB [Suspect]
     Indication: RHEUMATOID ARTHRITIS
     Dosage: 200 MG, UNKNOWN/D
     Route: 048
     Dates: start: 20071211, end: 20090331
  2. INDOMETHACIN [Concomitant]
     Indication: MUSCULOSKELETAL PAIN
     Dosage: UNK

REACTIONS (1)
  - DEATH [None]
